FAERS Safety Report 8880513 (Version 4)
Quarter: 2013Q2

REPORT INFORMATION
  Report Type: Report from Study
  Country: CA (occurrence: CA)
  Receive Date: 20121101
  Receipt Date: 20130429
  Transmission Date: 20140414
  Serious: Yes (Hospitalization)
  Sender: FDA-Public Use
  Company Number: CA-ABBOTT-12P-028-1001114-00

PATIENT
  Age: 39 Year
  Sex: Male
  Weight: 105 kg

DRUGS (7)
  1. HUMIRA [Suspect]
     Indication: PSORIASIS
     Route: 058
     Dates: start: 20071212, end: 20120521
  2. METHOTREXATE [Concomitant]
     Indication: PSORIASIS
     Dates: start: 20110221, end: 20120405
  3. MICARDIS [Concomitant]
     Indication: HYPERTENSION
     Dates: start: 200809
  4. NORVASC [Concomitant]
     Indication: HYPERTENSION
     Dates: start: 200901
  5. CELEBREX [Concomitant]
     Indication: ARTHRITIS
     Dates: start: 1999
  6. CELEXA [Concomitant]
     Indication: DEPRESSION
     Dates: start: 2003
  7. DOVOBET [Concomitant]
     Indication: PSORIASIS
     Dosage: 1 APPLICATION
     Dates: start: 20121024

REACTIONS (4)
  - Renal failure acute [Recovered/Resolved]
  - Urosepsis [Recovered/Resolved]
  - Urinary tract infection [Recovered/Resolved]
  - Kidney infection [Recovered/Resolved]
